FAERS Safety Report 4772360-3 (Version None)
Quarter: 2005Q3

REPORT INFORMATION
  Report Type: 
  Country: None (occurrence: None)
  Receive Date: 20050919
  Receipt Date: 20041103
  Transmission Date: 20060218
  Serious: No
  Sender: FDA-Public Use
  Company Number: US-BRISTOL-MYERS SQUIBB COMPANY-12754354

PATIENT
  Age: 53 Year
  Sex: Female
  Weight: 45 kg

DRUGS (3)
  1. KENALOG-40 [Suspect]
     Indication: RHEUMATOID ARTHRITIS
     Dosage: GIVEN SEVERAL TIMES
     Route: 030
     Dates: start: 20040401
  2. ADDERALL 10 [Concomitant]
     Dosage: DURATION OF THERAPY:  4 TO 5 YEARS.
  3. LAXATIVES [Concomitant]
     Dosage: TAKEN ^AT TIMES^

REACTIONS (5)
  - ALOPECIA [None]
  - COLITIS [None]
  - INJECTION SITE REACTION [None]
  - MUSCLE ATROPHY [None]
  - STAPHYLOCOCCAL INFECTION [None]
